FAERS Safety Report 18650483 (Version 1)
Quarter: 2020Q4

REPORT INFORMATION
  Report Type: Spontaneous
  Country: US (occurrence: US)
  Receive Date: 20201222
  Receipt Date: 20201222
  Transmission Date: 20210114
  Serious: No
  Sender: FDA-Public Use
  Company Number: US-ASTRAZENECA-2020SF56972

PATIENT
  Age: 69 Year
  Sex: Female
  Weight: 88.5 kg

DRUGS (4)
  1. PULMICORT FLEXHALER [Suspect]
     Active Substance: BUDESONIDE
     Indication: ASTHMA
     Dosage: 2 PUFFS TWO TIMES A DAY
     Route: 055
     Dates: start: 2006
  2. PULMICORT FLEXHALER [Suspect]
     Active Substance: BUDESONIDE
     Indication: DYSPNOEA
     Dosage: 1 PUFFS TWO TIMES A DAY
     Route: 055
     Dates: start: 2006
  3. PULMICORT FLEXHALER [Suspect]
     Active Substance: BUDESONIDE
     Indication: DYSPNOEA
     Dosage: 2 PUFFS TWO TIMES A DAY
     Route: 055
     Dates: start: 2006
  4. PULMICORT FLEXHALER [Suspect]
     Active Substance: BUDESONIDE
     Indication: ASTHMA
     Dosage: 1 PUFFS TWO TIMES A DAY
     Route: 055
     Dates: start: 2006

REACTIONS (4)
  - Arthropathy [Unknown]
  - Gait disturbance [Unknown]
  - Fall [Unknown]
  - Intentional product misuse [Unknown]
